FAERS Safety Report 6945665-5 (Version None)
Quarter: 2010Q3

REPORT INFORMATION
  Report Type: 
  Country: None (occurrence: None)
  Receive Date: 20100827
  Receipt Date: 20100819
  Transmission Date: 20110219
  Serious: Yes (Other)
  Sender: FDA-Public Use
  Company Number: GXKR2010GB06371

PATIENT
  Age: 65 Year
  Sex: Male

DRUGS (24)
  1. BENZYLPENICILLIN (NGX) [Suspect]
     Indication: GANGRENE
     Dosage: 1.3 G, QD
     Route: 042
     Dates: start: 20100420, end: 20100425
  2. FLUCLOXACILLIN (NGX) [Suspect]
     Indication: GANGRENE
     Dosage: 1 G, QD
     Route: 042
     Dates: start: 20100420, end: 20100425
  3. METRONIDAZOLE [Suspect]
     Indication: GANGRENE
     Dosage: 500 MG, TID
     Route: 042
     Dates: start: 20100420, end: 20100425
  4. TIMENTIN [Suspect]
     Indication: GANGRENE
     Dosage: 3.2 G, TID
     Route: 042
     Dates: start: 20100425, end: 20100426
  5. ASPIRIN [Concomitant]
     Route: 065
  6. BETAMETHASONE [Concomitant]
     Route: 065
  7. BUMETANIDE [Concomitant]
  8. DALTEPARIN SODIUM [Concomitant]
  9. DIGOXIN [Concomitant]
     Route: 065
  10. FERROUS SULFATE TAB [Concomitant]
  11. FUROSEMIDE [Concomitant]
  12. GLICLAZIDE [Concomitant]
     Route: 065
  13. METFORMIN [Concomitant]
  14. MORPHINE [Concomitant]
  15. NICOTINE [Concomitant]
  16. OMEPRAZOLE [Concomitant]
  17. PREDNISOLONE [Concomitant]
  18. RAMIPRIL [Concomitant]
     Route: 065
  19. RANITIDINE [Concomitant]
  20. ALBUTEROL SULFATE AUTOHALER [Concomitant]
  21. SPIRONOLACTONE [Concomitant]
  22. TIOTROPIUM BROMIDE [Concomitant]
  23. TRAMADOL HCL [Concomitant]
  24. WARFARIN [Concomitant]

REACTIONS (1)
  - THROMBOCYTOPENIA [None]
